FAERS Safety Report 6383501-9 (Version None)
Quarter: 2009Q4

REPORT INFORMATION
  Report Type: 
  Country: None (occurrence: None)
  Receive Date: 20091001
  Receipt Date: 20090923
  Transmission Date: 20100525
  Serious: Yes (Hospitalization)
  Sender: FDA-Public Use
  Company Number: US-ELI_LILLY_AND_COMPANY-US200909005634

PATIENT
  Sex: Female

DRUGS (14)
  1. HUMULIN 70/30 [Suspect]
     Indication: DIABETES MELLITUS
     Dosage: 50 U, EACH MORNING
     Dates: start: 19890101
  2. HUMULIN 70/30 [Suspect]
     Dosage: 20 U, EACH EVENING
     Dates: start: 19890101
  3. MORPHINE [Concomitant]
  4. ANAPROX [Concomitant]
  5. HYDROCODONE [Concomitant]
  6. MOTRIN [Concomitant]
  7. ALPRAZOLAM [Concomitant]
  8. CAPTOPRIL [Concomitant]
  9. HYDROXYZINE [Concomitant]
  10. HYDROCHLOROTHIAZIDE [Concomitant]
  11. ZANTAC [Concomitant]
  12. VERAPAMIL [Concomitant]
  13. TEMAZEPAM [Concomitant]
  14. VOLTAREN /SCH/ [Concomitant]

REACTIONS (6)
  - ABASIA [None]
  - ARTHROPATHY [None]
  - CARPAL TUNNEL SYNDROME [None]
  - INTERVERTEBRAL DISC PROTRUSION [None]
  - KNEE OPERATION [None]
  - PATELLA REPLACEMENT [None]
